FAERS Safety Report 18493652 (Version 1)
Quarter: 2020Q4

REPORT INFORMATION
  Report Type: Report from Study
  Country: US (occurrence: US)
  Receive Date: 20201112
  Receipt Date: 20201112
  Transmission Date: 20210114
  Serious: Yes (Other)
  Sender: FDA-Public Use
  Company Number: US-MTPC-MTDA2020-0069434

PATIENT
  Age: 59 Year
  Sex: Female

DRUGS (2)
  1. HEPARIN [Suspect]
     Active Substance: HEPARIN SODIUM
     Indication: PRODUCT USED FOR UNKNOWN INDICATION
     Dosage: UNK
     Route: 065
  2. EDARAVONE INJ [Suspect]
     Active Substance: EDARAVONE
     Indication: AMYOTROPHIC LATERAL SCLEROSIS
     Dosage: 60 MILLIGRAM, QD FOR 10 OUT OF 14 DAYS
     Route: 042
     Dates: start: 20190819, end: 20200930

REACTIONS (2)
  - Seizure [Not Recovered/Not Resolved]
  - Device related infection [Unknown]

NARRATIVE: CASE EVENT DATE: 20200930
